FAERS Safety Report 7404897-2 (Version None)
Quarter: 2011Q1

REPORT INFORMATION
  Report Type: 
  Country: None (occurrence: None)
  Receive Date: 20110301
  Receipt Date: 20100927
  Transmission Date: 20110831
  Serious: Yes (Hospitalization, Other)
  Sender: FDA-Public Use
  Company Number: RB-15892-2010

PATIENT
  Sex: Male

DRUGS (2)
  1. SUBOXONE [Suspect]
     Indication: DRUG DEPENDENCE
     Dosage: (8 MG BID TRANSPLACENTAL)
     Route: 064
     Dates: start: 20091214, end: 20091218
  2. SUBUTEX [Suspect]
     Indication: DRUG DEPENDENCE
     Dosage: (8 MG BID TRANSPLACENTAL)
     Route: 064
     Dates: start: 20091219, end: 20100821

REACTIONS (1)
  - JAUNDICE [None]
